FAERS Safety Report 21291458 (Version 1)
Quarter: 2022Q3

REPORT INFORMATION
  Report Type: Spontaneous
  Country: US (occurrence: US)
  Receive Date: 20220903
  Receipt Date: 20220903
  Transmission Date: 20221027
  Serious: No
  Sender: FDA-Public Use
  Company Number: US-TEVA-2022-US-2068119

PATIENT
  Sex: Female

DRUGS (2)
  1. BUPRENORPHINE HYDROCHLORIDE [Suspect]
     Active Substance: BUPRENORPHINE HYDROCHLORIDE
     Indication: Rheumatoid arthritis
     Dosage: STRENGTH: 7.5 MCG / HR
     Route: 062
  2. BUPRENORPHINE HYDROCHLORIDE [Suspect]
     Active Substance: BUPRENORPHINE HYDROCHLORIDE
     Route: 062
     Dates: start: 2022

REACTIONS (2)
  - Drug ineffective [Unknown]
  - Drug level decreased [Unknown]
